FAERS Safety Report 9782687 (Version 1)
Quarter: 2013Q4

REPORT INFORMATION
  Report Type: Spontaneous
  Country: US (occurrence: US)
  Receive Date: 20131226
  Receipt Date: 20131226
  Transmission Date: 20140711
  Serious: Yes (Other)
  Sender: FDA-Public Use
  Company Number: US-JNJFOC-20131213321

PATIENT
  Sex: 0

DRUGS (2)
  1. XARELTO [Suspect]
     Indication: THROMBOSIS PROPHYLAXIS
     Route: 048
     Dates: start: 201312, end: 201312
  2. XARELTO [Suspect]
     Indication: HIP SURGERY
     Route: 048
     Dates: start: 201312, end: 201312

REACTIONS (1)
  - Thrombosis [Unknown]
